FAERS Safety Report 20131728 (Version 1)
Quarter: 2021Q4

REPORT INFORMATION
  Report Type: Spontaneous
  Country: US (occurrence: None)
  Receive Date: 20211130
  Receipt Date: 20211130
  Transmission Date: 20220303
  Serious: Yes (Other)
  Sender: FDA-Public Use
  Company Number: 2021A824052

PATIENT
  Sex: Female

DRUGS (1)
  1. CALQUENCE [Suspect]
     Active Substance: ACALABRUTINIB
     Indication: B-cell small lymphocytic lymphoma
     Dosage: UNKNOWN
     Route: 048

REACTIONS (9)
  - Haematemesis [Unknown]
  - Ulcer haemorrhage [Unknown]
  - Lymph node pain [Unknown]
  - Gait disturbance [Unknown]
  - Pyrexia [Unknown]
  - Rash [Unknown]
  - Lymphadenopathy [Unknown]
  - Lymph gland infection [Unknown]
  - Drug interaction [Unknown]
